FAERS Safety Report 12921344 (Version 5)
Quarter: 2016Q4

REPORT INFORMATION
  Report Type: Spontaneous
  Country: CZ (occurrence: CZ)
  Receive Date: 20161108
  Receipt Date: 20161129
  Transmission Date: 20170207
  Serious: Yes (Other)
  Sender: FDA-Public Use
  Company Number: CZ-SA-2016SA199200

PATIENT
  Age: 40 Year
  Sex: Female
  Weight: 62 kg

DRUGS (10)
  1. GRANISETRON KABI [Suspect]
     Active Substance: GRANISETRON
     Indication: BREAST NEOPLASM
     Dosage: 1 AMPOULE
     Route: 042
     Dates: start: 20161020
  2. APAURIN [Suspect]
     Active Substance: DIAZEPAM
     Indication: BREAST NEOPLASM
     Dosage: APAURIN IN 100ML F1/1 I.V. FOR 10 MINUTES
     Route: 042
     Dates: start: 20161020
  3. CEREZYME [Suspect]
     Active Substance: IMIGLUCERASE
     Indication: GAUCHER^S DISEASE TYPE I
     Dosage: DOSE:30 UNIT(S)/KILOGRAM BODYWEIGHT
     Route: 041
     Dates: start: 199805
  4. CYCLOPHOSPHAMIDE. [Suspect]
     Active Substance: CYCLOPHOSPHAMIDE
     Indication: BREAST NEOPLASM
     Dosage: 1080MG + 250ML F1/1 FOR 1 HOUR
     Route: 065
     Dates: start: 20161020
  5. DOXORUBICINE [Suspect]
     Active Substance: DOXORUBICIN
     Indication: BREAST NEOPLASM
     Dosage: 110MG + 250ML F1/1 FOR 30 MINUTES.
     Route: 065
     Dates: start: 20161020
  6. DEXAMED//DEXAMETHASONE [Suspect]
     Active Substance: DEXAMETHASONE
     Indication: BREAST NEOPLASM
     Route: 065
     Dates: start: 20161020
  7. GRANEGIS [Suspect]
     Active Substance: GRANISETRON HYDROCHLORIDE
     Indication: BREAST NEOPLASM
     Route: 065
     Dates: start: 20161110
  8. QUAMATEL [Suspect]
     Active Substance: FAMOTIDINE
     Indication: BREAST NEOPLASM
     Dosage: 0.5 AMPOULE
     Route: 042
     Dates: start: 20161020
  9. SURGAM [Concomitant]
     Active Substance: TIAPROFENIC ACID
     Dosage: 300 MG 2X 1 TABLESPOON
  10. BISEPTOL [Concomitant]
     Active Substance: SULFAMETHOXAZOLE\TRIMETHOPRIM

REACTIONS (9)
  - Rhinitis [Unknown]
  - Cough [Unknown]
  - Invasive ductal breast carcinoma [None]
  - Breast neoplasm [Not Recovered/Not Resolved]
  - Retinal depigmentation [Unknown]
  - Blood pressure decreased [None]
  - Alopecia [Unknown]
  - Bone marrow infiltration [None]
  - Nuclear magnetic resonance imaging abnormal [None]

NARRATIVE: CASE EVENT DATE: 2016
